FAERS Safety Report 10483023 (Version 1)
Quarter: 2014Q3

REPORT INFORMATION
  Report Type: Spontaneous
  Country: ZA (occurrence: ZA)
  Receive Date: 20140930
  Receipt Date: 20140930
  Transmission Date: 20150326
  Serious: Yes (Other)
  Sender: FDA-Public Use
  Company Number: ZA-UCBSA-2014012739

PATIENT
  Age: 8 Month
  Sex: Female

DRUGS (4)
  1. KEPPRA [Suspect]
     Active Substance: LEVETIRACETAM
     Dosage: DAILY DOSE: 40 MG/KG/DAY
     Route: 042
     Dates: start: 2014, end: 2014
  2. EPILIZINE [Suspect]
     Active Substance: VALPROATE SODIUM
     Indication: CONVULSION
     Dosage: DAILY DOSE: 30 MG/KG/DAY
     Route: 042
     Dates: start: 2014
  3. KEPPRA [Suspect]
     Active Substance: LEVETIRACETAM
     Indication: CONVULSION
     Dosage: DAILY DOSE: 36 MG/KG/DAY
     Route: 042
     Dates: start: 2014, end: 2014
  4. EPILIM [Suspect]
     Active Substance: VALPROATE SODIUM
     Indication: CONVULSION
     Dosage: DAILY DOSE: 25 MG/KG/DAY
     Dates: start: 2014, end: 2014

REACTIONS (1)
  - Febrile convulsion [Unknown]

NARRATIVE: CASE EVENT DATE: 2014
